FAERS Safety Report 5185520-7 (Version None)
Quarter: 2006Q4

REPORT INFORMATION
  Report Type: 
  Country: None (occurrence: None)
  Receive Date: 20061220
  Receipt Date: 20060724
  Transmission Date: 20070319
  Serious: No
  Sender: FDA-Public Use
  Company Number: US-GLAXOSMITHKLINE-A0614659A

PATIENT
  Age: 62 Year
  Sex: Female

DRUGS (3)
  1. NICODERM CQ [Suspect]
  2. LORAZEPAM [Concomitant]
  3. ZOCOR [Concomitant]

REACTIONS (2)
  - ABNORMAL DREAMS [None]
  - NAIL DISCOLOURATION [None]
